FAERS Safety Report 4745655-7 (Version None)
Quarter: 2005Q3

REPORT INFORMATION
  Report Type: 
  Country: None (occurrence: None)
  Receive Date: 20050811
  Receipt Date: 20050803
  Transmission Date: 20060218
  Serious: Yes (Hospitalization)
  Sender: FDA-Public Use
  Company Number: 2005-08-0248

PATIENT
  Age: 63 Year
  Sex: Female
  Weight: 82 kg

DRUGS (1)
  1. INTRON A [Suspect]
     Indication: MALIGNANT MELANOMA
     Dosage: 3 MIU
     Dates: start: 20050825, end: 20050221

REACTIONS (3)
  - INTRACRANIAL ANEURYSM [None]
  - LOSS OF CONSCIOUSNESS [None]
  - SUBARACHNOID HAEMORRHAGE [None]
